FAERS Safety Report 8255641-0 (Version None)
Quarter: 2012Q2

REPORT INFORMATION
  Report Type: 
  Country: None (occurrence: None)
  Receive Date: 20120403
  Receipt Date: 20120330
  Transmission Date: 20120825
  Serious: Yes (Death)
  Sender: FDA-Public Use
  Company Number: US-B.I. PHARMACEUTICALS,INC./RIDGEFIELD-2012-BP-06016BP

PATIENT

DRUGS (1)
  1. PRADAXA [Suspect]

REACTIONS (2)
  - HEAD INJURY [None]
  - FALL [None]
